FAERS Safety Report 6097781-0 (Version None)
Quarter: 2009Q1

REPORT INFORMATION
  Report Type: 
  Country: None (occurrence: None)
  Receive Date: 20090227
  Receipt Date: 20090219
  Transmission Date: 20090719
  Serious: Yes (Hospitalization, Other)
  Sender: FDA-Public Use
  Company Number: US-CELGENEUS-163-21880-08101381

PATIENT
  Sex: Female

DRUGS (6)
  1. REVLIMID [Suspect]
     Route: 048
     Dates: start: 20080819
  2. REVLIMID [Suspect]
     Route: 048
     Dates: start: 20081018
  3. LASIX [Concomitant]
     Route: 065
  4. ZOMETA [Concomitant]
     Indication: DRUG USE FOR UNKNOWN INDICATION
     Route: 065
     Dates: start: 20080813
  5. ARANESP [Concomitant]
     Route: 065
     Dates: start: 20090107
  6. ASPIRIN [Concomitant]
     Indication: HYPERTENSION
     Route: 065
     Dates: start: 20090101

REACTIONS (7)
  - ATRIAL FIBRILLATION [None]
  - BLOOD POTASSIUM DECREASED [None]
  - DEHYDRATION [None]
  - DIARRHOEA [None]
  - DIZZINESS [None]
  - PLEURISY VIRAL [None]
  - STOMATITIS [None]
